FAERS Safety Report 7321782-5 (Version None)
Quarter: 2011Q1

REPORT INFORMATION
  Report Type: 
  Country: None (occurrence: None)
  Receive Date: 20110228
  Receipt Date: 20110222
  Transmission Date: 20110831
  Serious: Yes (Hospitalization, Other)
  Sender: FDA-Public Use
  Company Number: CHPA2011US03120

PATIENT
  Age: 52 Year
  Sex: Female
  Weight: 45.351 kg

DRUGS (6)
  1. PRIVATE LABEL [Suspect]
     Dosage: 14 MG, QD
     Route: 062
     Dates: start: 20100101, end: 20100101
  2. PRIVATE LABEL [Suspect]
     Indication: SMOKING CESSATION THERAPY
     Dosage: 14 MG, QD
     Route: 062
     Dates: start: 20110201
  3. PRIVATE LABEL [Suspect]
     Dosage: 14 MG, QD
     Route: 062
     Dates: start: 20110201, end: 20110201
  4. PRIVATE LABEL [Suspect]
     Dosage: 7 MG, QD
     Route: 062
     Dates: start: 20040101, end: 20040101
  5. PRIVATE LABEL [Suspect]
     Dosage: 14 MG, QD
     Route: 062
     Dates: start: 20040101, end: 20040101
  6. PRIVATE LABEL [Suspect]
     Dosage: 21 MG, QD
     Route: 062
     Dates: start: 20040101, end: 20040101

REACTIONS (7)
  - MYOCARDIAL INFARCTION [None]
  - HEART RATE INCREASED [None]
  - TREATMENT NONCOMPLIANCE [None]
  - STENT PLACEMENT [None]
  - STRESS [None]
  - OVERDOSE [None]
  - CEREBROVASCULAR ACCIDENT [None]
